FAERS Safety Report 18151022 (Version 1)
Quarter: 2020Q3

REPORT INFORMATION
  Report Type: Spontaneous
  Country: US (occurrence: US)
  Receive Date: 20200814
  Receipt Date: 20200814
  Transmission Date: 20201103
  Serious: No
  Sender: FDA-Public Use
  Company Number: US-SUNOVION-2020SUN002306

PATIENT
  Sex: Male

DRUGS (2)
  1. CAPLYTA [Concomitant]
     Active Substance: LUMATEPERONE
     Dosage: UNK
  2. LATUDA [Suspect]
     Active Substance: LURASIDONE HYDROCHLORIDE
     Dosage: UNK
     Route: 048
     Dates: start: 202006

REACTIONS (2)
  - Anxiety [Unknown]
  - Emotional disorder [Unknown]
